FAERS Safety Report 12751612 (Version 1)
Quarter: 2016Q3

REPORT INFORMATION
  Report Type: Spontaneous
  Country: CA (occurrence: CA)
  Receive Date: 20160915
  Receipt Date: 20160915
  Transmission Date: 20161109
  Serious: Yes (Other)
  Sender: FDA-Public Use
  Company Number: CA-JAZZ-2015-CA-015722

PATIENT
  Age: 3 Month
  Sex: Male

DRUGS (4)
  1. ASPARAGINASE [Suspect]
     Active Substance: ASPARAGINASE
     Indication: CHLOROMA
  2. DAUNORUBICIN [Suspect]
     Active Substance: DAUNORUBICIN
     Indication: CHLOROMA
  3. ETOPOSIDE. [Suspect]
     Active Substance: ETOPOSIDE
     Indication: CHLOROMA
  4. CYTARABINE. [Suspect]
     Active Substance: CYTARABINE
     Indication: CHLOROMA
     Route: 037

REACTIONS (1)
  - Infection [Recovered/Resolved]
